FAERS Safety Report 7660912-2 (Version None)
Quarter: 2011Q3

REPORT INFORMATION
  Report Type: 
  Country: None (occurrence: None)
  Receive Date: 20110805
  Receipt Date: 20100923
  Transmission Date: 20111222
  Serious: No
  Sender: FDA-Public Use
  Company Number: US-ABBOTT-10P-163-0674296-00

PATIENT
  Sex: Male
  Weight: 88.53 kg

DRUGS (7)
  1. MAVIK [Concomitant]
  2. CRESTOR [Concomitant]
  3. PLAVIX [Concomitant]
  4. METOPROLOL TARTRATE [Concomitant]
  5. NIASPAN [Suspect]
     Dates: start: 20100701
  6. NIASPAN [Suspect]
     Dates: end: 20100701
  7. NEXIUM [Concomitant]

REACTIONS (2)
  - FLUSHING [None]
  - ANORECTAL DISCOMFORT [None]
